FAERS Safety Report 8920568 (Version 2)
Quarter: 2012Q4

REPORT INFORMATION
  Report Type: 
  Country: US (occurrence: US)
  Receive Date: 20121121
  Receipt Date: 20121130
  Transmission Date: 20130627
  Serious: Yes (Other)
  Sender: FDA-Public Use
  Company Number: US-ROCHE-1146705

PATIENT
  Sex: Female

DRUGS (4)
  1. PEGASYS [Suspect]
     Indication: CHRONIC HEPATITIS C
     Route: 058
     Dates: start: 20120108
  2. RIBAVIRIN [Suspect]
     Indication: CHRONIC HEPATITIS C
     Route: 048
     Dates: start: 20120108
  3. TELAPREVIR [Suspect]
     Indication: CHRONIC HEPATITIS C
     Route: 065
     Dates: start: 20120108, end: 20120411
  4. XANAX [Concomitant]
     Indication: IRRITABILITY
     Route: 065

REACTIONS (17)
  - Physical assault [Unknown]
  - Memory impairment [Unknown]
  - Device malfunction [Unknown]
  - Fatigue [Unknown]
  - Alopecia [Unknown]
  - Pruritus [Unknown]
  - Dry mouth [Unknown]
  - Muscle spasms [Unknown]
  - Stress [Unknown]
  - Anger [Unknown]
  - Dysgeusia [Unknown]
  - Irritability [Unknown]
  - Pain [Unknown]
  - Abdominal pain upper [Unknown]
  - Constipation [Unknown]
  - Urine odour abnormal [Unknown]
  - Nausea [Unknown]
